FAERS Safety Report 8767949 (Version 1)
Quarter: 2012Q4

REPORT INFORMATION
  Report Type: 
  Country: US (occurrence: US)
  Receive Date: 20120904
  Receipt Date: 20120904
  Transmission Date: 20130627
  Serious: Yes (Other)
  Sender: FDA-Public Use
  Company Number: US-AMGEN-USASP2012053069

PATIENT
  Age: 48 Year
  Sex: Female

DRUGS (2)
  1. ENBREL [Suspect]
     Indication: RHEUMATOID ARTHRITIS
     Dosage: UNK UNK, qwk
     Dates: start: 20081009
  2. ENBREL [Suspect]

REACTIONS (5)
  - Pneumonia legionella [Recovered/Resolved]
  - Tumour marker increased [Not Recovered/Not Resolved]
  - Asthenia [Recovered/Resolved]
  - Dyspnoea [Recovered/Resolved]
  - Fungal infection [Recovered/Resolved]
